FAERS Safety Report 14893989 (Version 2)
Quarter: 2018Q2

REPORT INFORMATION
  Report Type: Report from Study
  Country: CO (occurrence: CO)
  Receive Date: 20180514
  Receipt Date: 20180614
  Transmission Date: 20180711
  Serious: Yes (Hospitalization)
  Sender: FDA-Public Use
  Company Number: PHHY2018CO027528

PATIENT
  Age: 3 Year
  Sex: Female
  Weight: 14 kg

DRUGS (3)
  1. ILARIS [Suspect]
     Active Substance: CANAKINUMAB
     Indication: STILL^S DISEASE
     Dosage: 56 MG, QMO
     Route: 058
     Dates: start: 20170707
  2. ILARIS [Suspect]
     Active Substance: CANAKINUMAB
     Dosage: UNK
     Route: 065
     Dates: start: 20180124
  3. CICLOSPORIN [Concomitant]
     Active Substance: CYCLOSPORINE
     Indication: PRODUCT USED FOR UNKNOWN INDICATION
     Route: 065

REACTIONS (16)
  - Alopecia [Unknown]
  - Headache [Not Recovered/Not Resolved]
  - Pallor [Unknown]
  - Hordeolum [Not Recovered/Not Resolved]
  - Oedema peripheral [Unknown]
  - Vomiting [Unknown]
  - Syncope [Unknown]
  - Pain in extremity [Not Recovered/Not Resolved]
  - Gastritis [Unknown]
  - Tension [Unknown]
  - Pyrexia [Unknown]
  - Dizziness [Unknown]
  - Asthenia [Unknown]
  - Nausea [Unknown]
  - Hyperhidrosis [Unknown]
  - Arthralgia [Not Recovered/Not Resolved]

NARRATIVE: CASE EVENT DATE: 201711
